FAERS Safety Report 9779772 (Version 4)
Quarter: 2014Q4

REPORT INFORMATION
  Report Type: Report from Study
  Country: JP (occurrence: JP)
  Receive Date: 20131223
  Receipt Date: 20141210
  Transmission Date: 20150529
  Serious: Yes (Hospitalization, Disabling, Other)
  Sender: FDA-Public Use
  Company Number: JP-GLAXOSMITHKLINE-B0881181A

PATIENT
  Sex: Male
  Weight: 40 kg

DRUGS (157)
  1. AMBISOME [Suspect]
     Active Substance: AMPHOTERICIN B
     Route: 041
     Dates: start: 20130327, end: 20130327
  2. CYLOCIDE [Suspect]
     Active Substance: CYTARABINE
     Route: 029
     Dates: start: 20130129, end: 20130208
  3. CYLOCIDE [Suspect]
     Active Substance: CYTARABINE
     Route: 029
     Dates: start: 20130305, end: 20130311
  4. CYLOCIDE [Suspect]
     Active Substance: CYTARABINE
     Route: 029
     Dates: start: 20130415, end: 20130425
  5. METHOTREXATE [Suspect]
     Active Substance: METHOTREXATE
     Route: 029
     Dates: start: 20130107, end: 20130117
  6. PREDONINE [Suspect]
     Active Substance: PREDNISOLONE\PREDNISOLONE ACETATE\PREDNISOLONE SODIUM SUCCINATE
     Route: 029
     Dates: start: 20130129, end: 20130208
  7. PREDONINE [Suspect]
     Active Substance: PREDNISOLONE\PREDNISOLONE ACETATE\PREDNISOLONE SODIUM SUCCINATE
     Route: 029
     Dates: start: 20130305, end: 20130311
  8. PREDONINE [Suspect]
     Active Substance: PREDNISOLONE\PREDNISOLONE ACETATE\PREDNISOLONE SODIUM SUCCINATE
     Route: 029
     Dates: start: 20130415, end: 20130425
  9. FUNGUARD [Suspect]
     Active Substance: MICAFUNGIN SODIUM
     Route: 041
  10. BAKTAR [Concomitant]
     Active Substance: SULFAMETHOXAZOLE\TRIMETHOPRIM
     Indication: INFECTION PROPHYLAXIS
     Route: 048
     Dates: start: 20120828
  11. FAMOTIDINE D [Concomitant]
     Active Substance: FAMOTIDINE
     Indication: PROPHYLAXIS
     Route: 048
     Dates: start: 20121207, end: 20121213
  12. FLUOROMETHOLONE. [Concomitant]
     Active Substance: FLUOROMETHOLONE
     Indication: PROPHYLAXIS
     Route: 031
     Dates: start: 20121207, end: 20121208
  13. FLUOROMETHOLONE. [Concomitant]
     Active Substance: FLUOROMETHOLONE
     Route: 031
     Dates: start: 20130305, end: 20130306
  14. SLOW-K [Concomitant]
     Active Substance: POTASSIUM CHLORIDE
     Route: 048
     Dates: start: 20130922
  15. GRANISETRON [Concomitant]
     Active Substance: GRANISETRON
     Route: 042
     Dates: start: 20130524, end: 20130524
  16. GRANISETRON [Concomitant]
     Active Substance: GRANISETRON
     Route: 042
     Dates: start: 20130830, end: 20130902
  17. SAXIZON [Concomitant]
     Active Substance: HYDROCORTISONE SODIUM SUCCINATE
     Dosage: UNK
     Route: 042
     Dates: start: 20130112, end: 20130112
  18. SAXIZON [Concomitant]
     Active Substance: HYDROCORTISONE SODIUM SUCCINATE
     Dosage: UNK
     Route: 042
     Dates: start: 20130208, end: 20130208
  19. POLARAMINE [Concomitant]
     Active Substance: DEXCHLORPHENIRAMINE MALEATE
     Route: 042
     Dates: start: 20130112, end: 20130112
  20. POLARAMINE [Concomitant]
     Active Substance: DEXCHLORPHENIRAMINE MALEATE
     Route: 042
     Dates: start: 20130117, end: 20130117
  21. URONASE [Concomitant]
     Route: 042
     Dates: start: 20130412, end: 20130412
  22. ISOZOL [Concomitant]
     Active Substance: THIAMYLAL SODIUM
     Dosage: UNK
     Route: 042
     Dates: start: 20130924, end: 20130924
  23. AMBISOME [Suspect]
     Active Substance: AMPHOTERICIN B
     Route: 041
     Dates: start: 20130328
  24. DECADRON [Suspect]
     Active Substance: DEXAMETHASONE
     Route: 048
     Dates: start: 20130107, end: 20130117
  25. CYLOCIDE [Suspect]
     Active Substance: CYTARABINE
     Route: 041
     Dates: start: 20121207, end: 20121225
  26. CYLOCIDE [Suspect]
     Active Substance: CYTARABINE
     Route: 041
     Dates: start: 20130514, end: 20130524
  27. METHOTREXATE [Suspect]
     Active Substance: METHOTREXATE
     Route: 041
     Dates: start: 20130415, end: 20130425
  28. LEUCOVORIN [Suspect]
     Active Substance: LEUCOVORIN
     Route: 042
     Dates: start: 20130415, end: 20130425
  29. LEUKERIN [Suspect]
     Active Substance: MERCAPTOPURINE
     Route: 048
     Dates: start: 20130926
  30. VFEND [Suspect]
     Active Substance: VORICONAZOLE
     Route: 065
  31. VENILON [Suspect]
     Active Substance: HUMAN IMMUNOGLOBULIN G
     Route: 042
     Dates: start: 20130716, end: 20130716
  32. VENILON [Suspect]
     Active Substance: HUMAN IMMUNOGLOBULIN G
     Route: 042
     Dates: start: 20130917, end: 20130917
  33. MAGLAX [Concomitant]
     Active Substance: MAGNESIUM OXIDE
     Indication: CONSTIPATION
     Route: 048
     Dates: start: 20130204
  34. NASEA-OD [Concomitant]
     Indication: PROPHYLAXIS OF NAUSEA AND VOMITING
     Route: 048
     Dates: start: 20130926, end: 20130927
  35. GRANISETRON [Concomitant]
     Active Substance: GRANISETRON
     Route: 042
     Dates: start: 20130806, end: 20130811
  36. SAXIZON [Concomitant]
     Active Substance: HYDROCORTISONE SODIUM SUCCINATE
     Dosage: UNK
     Route: 042
     Dates: start: 20130203, end: 20130203
  37. SAXIZON [Concomitant]
     Active Substance: HYDROCORTISONE SODIUM SUCCINATE
     Dosage: UNK
     Route: 042
     Dates: start: 20130315, end: 20130315
  38. SAXIZON [Concomitant]
     Active Substance: HYDROCORTISONE SODIUM SUCCINATE
     Dosage: UNK
     Route: 042
     Dates: start: 20130320, end: 20130320
  39. SAXIZON [Concomitant]
     Active Substance: HYDROCORTISONE SODIUM SUCCINATE
     Dosage: UNK
     Route: 042
     Dates: start: 20130524, end: 20130524
  40. MIDAZOLAM [Concomitant]
     Active Substance: MIDAZOLAM\MIDAZOLAM HYDROCHLORIDE
     Indication: SEDATION
     Dosage: UNK
     Route: 042
     Dates: start: 20121211, end: 20121211
  41. MIDAZOLAM [Concomitant]
     Active Substance: MIDAZOLAM\MIDAZOLAM HYDROCHLORIDE
     Dosage: UNK
     Route: 042
     Dates: start: 20130311, end: 20130311
  42. KETALAR [Concomitant]
     Active Substance: KETAMINE HYDROCHLORIDE
     Route: 042
     Dates: start: 20130129, end: 20130129
  43. POLARAMINE [Concomitant]
     Active Substance: DEXCHLORPHENIRAMINE MALEATE
     Route: 042
     Dates: start: 20121217, end: 20121217
  44. POLARAMINE [Concomitant]
     Active Substance: DEXCHLORPHENIRAMINE MALEATE
     Route: 042
     Dates: start: 20130420, end: 20130420
  45. URONASE [Concomitant]
     Route: 042
     Dates: start: 20130704, end: 20130704
  46. DECADRON [Suspect]
     Active Substance: DEXAMETHASONE
     Route: 065
     Dates: start: 20130611, end: 20130903
  47. ETOPOSIDE. [Suspect]
     Active Substance: ETOPOSIDE
     Route: 041
     Dates: start: 20130305, end: 20130311
  48. LEUNASE [Suspect]
     Active Substance: ASPARAGINASE
     Route: 030
     Dates: start: 20130514, end: 20130524
  49. METHOTREXATE [Suspect]
     Active Substance: METHOTREXATE
     Route: 041
     Dates: start: 20130129, end: 20130208
  50. UROMITEXAN [Suspect]
     Active Substance: MESNA
     Route: 042
     Dates: start: 20130415, end: 20130425
  51. GRANISETRON [Concomitant]
     Active Substance: GRANISETRON
     Route: 042
     Dates: start: 20130514, end: 20130519
  52. GRANISETRON [Concomitant]
     Active Substance: GRANISETRON
     Route: 042
     Dates: start: 20130618, end: 20130702
  53. SAXIZON [Concomitant]
     Active Substance: HYDROCORTISONE SODIUM SUCCINATE
     Indication: ALLERGY PROPHYLAXIS
     Dosage: UNK
     Route: 042
     Dates: start: 20121212, end: 20121212
  54. KETALAR [Concomitant]
     Active Substance: KETAMINE HYDROCHLORIDE
     Indication: SEDATION
     Route: 042
     Dates: start: 20121211, end: 20121211
  55. POLARAMINE [Concomitant]
     Active Substance: DEXCHLORPHENIRAMINE MALEATE
     Route: 042
     Dates: start: 20130519, end: 20130519
  56. POLARAMINE [Concomitant]
     Active Substance: DEXCHLORPHENIRAMINE MALEATE
     Route: 042
     Dates: start: 20130524, end: 20130524
  57. URONASE [Concomitant]
     Route: 042
     Dates: start: 20130920, end: 20130920
  58. UNKNOWN DRUG [Concomitant]
     Active Substance: UNSPECIFIED INGREDIENT
     Indication: HYPOALBUMINAEMIA
     Route: 042
     Dates: start: 20130419, end: 20130419
  59. ISOZOL [Concomitant]
     Active Substance: THIAMYLAL SODIUM
     Indication: SEDATION
     Route: 042
     Dates: start: 20130808, end: 20130808
  60. DECADRON [Suspect]
     Active Substance: DEXAMETHASONE
     Route: 048
     Dates: start: 20130415, end: 20130425
  61. CYLOCIDE [Suspect]
     Active Substance: CYTARABINE
     Route: 029
     Dates: start: 20121207, end: 20121225
  62. CYLOCIDE [Suspect]
     Active Substance: CYTARABINE
     Route: 029
     Dates: start: 20130107, end: 20130117
  63. CYLOCIDE [Suspect]
     Active Substance: CYTARABINE
     Route: 041
     Dates: start: 20130129, end: 20130208
  64. ETOPOSIDE. [Suspect]
     Active Substance: ETOPOSIDE
     Route: 041
     Dates: start: 20121207, end: 20121225
  65. LEUNASE [Suspect]
     Active Substance: ASPARAGINASE
     Route: 030
     Dates: start: 20130129, end: 20130208
  66. LEUNASE [Suspect]
     Active Substance: ASPARAGINASE
     Route: 030
     Dates: start: 20130415, end: 20130425
  67. LEUNASE [Suspect]
     Active Substance: ASPARAGINASE
     Route: 030
     Dates: start: 20130611, end: 20130903
  68. METHOTREXATE [Suspect]
     Active Substance: METHOTREXATE
     Route: 029
     Dates: start: 20130611, end: 20130903
  69. PREDONINE [Suspect]
     Active Substance: PREDNISOLONE\PREDNISOLONE ACETATE\PREDNISOLONE SODIUM SUCCINATE
     Route: 029
     Dates: start: 20130514, end: 20130524
  70. FILDESIN [Suspect]
     Active Substance: VINDESINE SULFATE
     Route: 042
     Dates: start: 20130107, end: 20130117
  71. UROMITEXAN [Suspect]
     Active Substance: MESNA
     Route: 042
     Dates: start: 20130107, end: 20130117
  72. FENTANYL. [Suspect]
     Active Substance: FENTANYL
     Route: 065
  73. ITRIZOLE [Concomitant]
     Active Substance: ITRACONAZOLE
     Indication: INFECTION PROPHYLAXIS
     Route: 048
     Dates: start: 20120829
  74. FAMOTIDINE D [Concomitant]
     Active Substance: FAMOTIDINE
     Route: 048
     Dates: start: 20130305, end: 20130311
  75. SENNOSIDE [Concomitant]
     Active Substance: SENNOSIDES
     Indication: CONSTIPATION
     Route: 048
     Dates: start: 20130811, end: 20130812
  76. GRANISETRON [Concomitant]
     Active Substance: GRANISETRON
     Indication: PROPHYLAXIS OF NAUSEA AND VOMITING
     Route: 042
     Dates: start: 20121207, end: 20121211
  77. GRANISETRON [Concomitant]
     Active Substance: GRANISETRON
     Indication: ALLERGY PROPHYLAXIS
     Route: 042
     Dates: start: 20130107, end: 20130111
  78. GRANISETRON [Concomitant]
     Active Substance: GRANISETRON
     Indication: PROPHYLAXIS OF NAUSEA AND VOMITING
     Route: 042
     Dates: start: 20130305, end: 20130311
  79. MIDAZOLAM [Concomitant]
     Active Substance: MIDAZOLAM\MIDAZOLAM HYDROCHLORIDE
     Dosage: UNK
     Route: 042
     Dates: start: 20130129, end: 20130129
  80. POLARAMINE [Concomitant]
     Active Substance: DEXCHLORPHENIRAMINE MALEATE
     Route: 042
     Dates: start: 20121221, end: 20121221
  81. POLARAMINE [Concomitant]
     Active Substance: DEXCHLORPHENIRAMINE MALEATE
     Route: 042
     Dates: start: 20130315, end: 20130315
  82. NELARABINE [Suspect]
     Active Substance: NELARABINE
     Route: 041
     Dates: start: 20130226, end: 20130302
  83. CYLOCIDE [Suspect]
     Active Substance: CYTARABINE
     Route: 042
     Dates: start: 20130611, end: 20130903
  84. CYLOCIDE [Suspect]
     Active Substance: CYTARABINE
     Route: 029
     Dates: start: 20130611, end: 20130903
  85. LEUNASE [Suspect]
     Active Substance: ASPARAGINASE
     Route: 030
     Dates: start: 20130107, end: 20130117
  86. METHOTREXATE [Suspect]
     Active Substance: METHOTREXATE
     Route: 041
     Dates: start: 20130514, end: 20130524
  87. METHOTREXATE [Suspect]
     Active Substance: METHOTREXATE
     Route: 029
     Dates: start: 20130926
  88. LEUCOVORIN [Suspect]
     Active Substance: LEUCOVORIN
     Route: 042
     Dates: start: 20130514, end: 20130524
  89. ENDOXAN [Suspect]
     Active Substance: CYCLOPHOSPHAMIDE
     Route: 041
     Dates: start: 20130129, end: 20130208
  90. ENDOXAN [Suspect]
     Active Substance: CYCLOPHOSPHAMIDE
     Route: 042
     Dates: start: 20130514, end: 20130524
  91. BRUFEN [Suspect]
     Active Substance: IBUPROFEN
     Route: 041
  92. HACHIAZULE [Concomitant]
     Indication: THERAPEUTIC GARGLE
     Route: 002
     Dates: start: 20121217, end: 20130307
  93. GRANISETRON [Concomitant]
     Active Substance: GRANISETRON
     Indication: PROPHYLAXIS OF NAUSEA AND VOMITING
     Route: 042
     Dates: start: 20130226, end: 20130302
  94. GRANISETRON [Concomitant]
     Active Substance: GRANISETRON
     Route: 042
     Dates: start: 20130415, end: 20130420
  95. POLARAMINE [Concomitant]
     Active Substance: DEXCHLORPHENIRAMINE MALEATE
     Indication: ALLERGY PROPHYLAXIS
     Route: 042
     Dates: start: 20121214, end: 20121214
  96. UROKINASE [Concomitant]
     Active Substance: UROKINASE
     Route: 042
     Dates: start: 20121217, end: 20121217
  97. UROKINASE [Concomitant]
     Active Substance: UROKINASE
     Route: 042
     Dates: start: 20130128, end: 20130128
  98. XYLOCAINE SYRINGE [Concomitant]
     Indication: LOCAL ANAESTHESIA
     Route: 042
     Dates: start: 20130924, end: 20130924
  99. NELARABINE [Suspect]
     Active Substance: NELARABINE
     Indication: ACUTE LYMPHOCYTIC LEUKAEMIA
     Route: 041
     Dates: start: 20121129, end: 20121203
  100. DECADRON [Suspect]
     Active Substance: DEXAMETHASONE
     Route: 048
     Dates: start: 20130129, end: 20130208
  101. DECADRON [Suspect]
     Active Substance: DEXAMETHASONE
     Route: 048
     Dates: start: 20130514, end: 20130524
  102. CYLOCIDE [Suspect]
     Active Substance: CYTARABINE
     Route: 029
     Dates: start: 20130514, end: 20130524
  103. LEUNASE [Suspect]
     Active Substance: ASPARAGINASE
     Route: 030
     Dates: start: 20130305, end: 20130311
  104. METHOTREXATE [Suspect]
     Active Substance: METHOTREXATE
     Route: 041
     Dates: start: 20130107, end: 20130117
  105. METHOTREXATE [Suspect]
     Active Substance: METHOTREXATE
     Route: 029
     Dates: start: 20130305, end: 20130311
  106. PREDONINE [Suspect]
     Active Substance: PREDNISOLONE\PREDNISOLONE ACETATE\PREDNISOLONE SODIUM SUCCINATE
     Route: 029
     Dates: start: 20130107, end: 20130117
  107. PREDONINE [Suspect]
     Active Substance: PREDNISOLONE\PREDNISOLONE ACETATE\PREDNISOLONE SODIUM SUCCINATE
     Route: 029
     Dates: start: 20130611, end: 20130903
  108. LEUCOVORIN [Suspect]
     Active Substance: LEUCOVORIN
     Route: 042
     Dates: start: 20130129, end: 20130208
  109. ONCOVIN [Suspect]
     Active Substance: VINCRISTINE SULFATE
     Route: 042
     Dates: start: 20130514, end: 20130524
  110. VENILON [Suspect]
     Active Substance: HUMAN IMMUNOGLOBULIN G
     Indication: HYPOGAMMAGLOBULINAEMIA
     Route: 042
     Dates: start: 20130515, end: 20130515
  111. SAWACILLIN [Concomitant]
     Active Substance: AMOXICILLIN
     Indication: INFECTION PROPHYLAXIS
     Route: 048
     Dates: start: 20121211, end: 20121211
  112. NOVAMIN [Concomitant]
     Active Substance: PROCHLORPERAZINE MALEATE
     Indication: PROPHYLAXIS OF NAUSEA AND VOMITING
     Route: 048
     Dates: start: 20130605
  113. GRANISETRON [Concomitant]
     Active Substance: GRANISETRON
     Indication: PROPHYLAXIS OF NAUSEA AND VOMITING
     Route: 042
     Dates: start: 20130208, end: 20130208
  114. GRANISETRON [Concomitant]
     Active Substance: GRANISETRON
     Route: 042
     Dates: start: 20130315, end: 20130315
  115. GRANISETRON [Concomitant]
     Active Substance: GRANISETRON
     Route: 042
     Dates: start: 20130726, end: 20130726
  116. SAXIZON [Concomitant]
     Active Substance: HYDROCORTISONE SODIUM SUCCINATE
     Dosage: UNK
     Route: 042
     Dates: start: 20130420, end: 20130420
  117. KETALAR [Concomitant]
     Active Substance: KETAMINE HYDROCHLORIDE
     Route: 042
     Dates: start: 20130107, end: 20130107
  118. KETALAR [Concomitant]
     Active Substance: KETAMINE HYDROCHLORIDE
     Route: 042
     Dates: start: 20130514, end: 20130514
  119. DECADRON [Suspect]
     Active Substance: DEXAMETHASONE
     Route: 048
     Dates: start: 20121207, end: 20121225
  120. CYLOCIDE [Suspect]
     Active Substance: CYTARABINE
     Route: 041
     Dates: start: 20130305, end: 20130311
  121. LEUNASE [Suspect]
     Active Substance: ASPARAGINASE
     Route: 030
     Dates: start: 20121207, end: 20121225
  122. METHOTREXATE [Suspect]
     Active Substance: METHOTREXATE
     Route: 029
     Dates: start: 20130415, end: 20130425
  123. METHOTREXATE [Suspect]
     Active Substance: METHOTREXATE
     Route: 029
     Dates: start: 20130514, end: 20130524
  124. FILDESIN [Suspect]
     Active Substance: VINDESINE SULFATE
     Route: 042
     Dates: start: 20130415, end: 20130425
  125. ONCOVIN [Suspect]
     Active Substance: VINCRISTINE SULFATE
     Route: 042
     Dates: start: 20130611, end: 20130903
  126. MEROPEN [Suspect]
     Active Substance: MEROPENEM
     Route: 041
  127. FAMOTIDINE D [Concomitant]
     Active Substance: FAMOTIDINE
     Route: 048
     Dates: start: 20130107, end: 20130216
  128. SLOW-K [Concomitant]
     Active Substance: POTASSIUM CHLORIDE
     Indication: HYPOKALAEMIA
     Route: 048
     Dates: start: 20130715, end: 20130730
  129. NASEA-OD [Concomitant]
     Route: 048
     Dates: start: 20131120, end: 20131120
  130. SAXIZON [Concomitant]
     Active Substance: HYDROCORTISONE SODIUM SUCCINATE
     Dosage: UNK
     Route: 042
     Dates: start: 20121225, end: 20121225
  131. SAXIZON [Concomitant]
     Active Substance: HYDROCORTISONE SODIUM SUCCINATE
     Dosage: UNK
     Route: 042
     Dates: start: 20130310, end: 20130310
  132. MIDAZOLAM [Concomitant]
     Active Substance: MIDAZOLAM\MIDAZOLAM HYDROCHLORIDE
     Dosage: UNK
     Route: 042
     Dates: start: 20130415, end: 20130415
  133. POLARAMINE [Concomitant]
     Active Substance: DEXCHLORPHENIRAMINE MALEATE
     Route: 042
     Dates: start: 20130320, end: 20130320
  134. URONASE [Concomitant]
     Route: 042
     Dates: start: 20130812, end: 20130812
  135. DECADRON [Suspect]
     Active Substance: DEXAMETHASONE
     Route: 048
     Dates: start: 20130305, end: 20130311
  136. METHOTREXATE [Suspect]
     Active Substance: METHOTREXATE
     Route: 029
     Dates: start: 20121207, end: 20121225
  137. METHOTREXATE [Suspect]
     Active Substance: METHOTREXATE
     Route: 029
     Dates: start: 20130129, end: 20130208
  138. PREDONINE [Suspect]
     Active Substance: PREDNISOLONE\PREDNISOLONE ACETATE\PREDNISOLONE SODIUM SUCCINATE
     Route: 029
     Dates: start: 20121207, end: 20121225
  139. LEUCOVORIN [Suspect]
     Active Substance: LEUCOVORIN
     Route: 042
     Dates: start: 20130107, end: 20130117
  140. IFOMIDE [Suspect]
     Active Substance: IFOSFAMIDE
     Route: 042
     Dates: start: 20130107, end: 20130117
  141. IFOMIDE [Suspect]
     Active Substance: IFOSFAMIDE
     Route: 042
     Dates: start: 20130415, end: 20130425
  142. ONCOVIN [Suspect]
     Active Substance: VINCRISTINE SULFATE
     Route: 042
     Dates: start: 20130129, end: 20130208
  143. ENDOXAN [Suspect]
     Active Substance: CYCLOPHOSPHAMIDE
     Route: 041
     Dates: start: 20130611, end: 20130903
  144. DOXORUBICIN HYDROCHLORIDE. [Suspect]
     Active Substance: DOXORUBICIN HYDROCHLORIDE
     Route: 041
     Dates: start: 20130611, end: 20130903
  145. ZOSYN [Suspect]
     Active Substance: PIPERACILLIN SODIUM\TAZOBACTAM SODIUM
     Route: 041
  146. FLUOROMETHOLONE. [Concomitant]
     Active Substance: FLUOROMETHOLONE
     Route: 031
     Dates: start: 20130202, end: 20130203
  147. XYLOCAINE [Concomitant]
     Active Substance: LIDOCAINE HYDROCHLORIDE
     Indication: THERAPEUTIC GARGLE
     Route: 002
     Dates: start: 20121217, end: 20130307
  148. ASTRIC [Concomitant]
     Active Substance: ACYCLOVIR
     Indication: INFECTION PROPHYLAXIS
     Route: 048
     Dates: start: 20130522, end: 20130604
  149. GRANISETRON [Concomitant]
     Active Substance: GRANISETRON
     Indication: PROPHYLAXIS OF NAUSEA AND VOMITING
     Route: 042
     Dates: start: 20121129, end: 20121203
  150. GRANISETRON [Concomitant]
     Active Substance: GRANISETRON
     Indication: PROPHYLAXIS OF NAUSEA AND VOMITING
     Route: 042
     Dates: start: 20130129, end: 20130203
  151. SAXIZON [Concomitant]
     Active Substance: HYDROCORTISONE SODIUM SUCCINATE
     Dosage: UNK
     Route: 042
     Dates: start: 20130117, end: 20130117
  152. SAXIZON [Concomitant]
     Active Substance: HYDROCORTISONE SODIUM SUCCINATE
     Dosage: UNK
     Route: 042
     Dates: start: 20130519, end: 20130519
  153. MIDAZOLAM [Concomitant]
     Active Substance: MIDAZOLAM\MIDAZOLAM HYDROCHLORIDE
     Dosage: UNK
     Route: 042
     Dates: start: 20130107, end: 20130107
  154. MIDAZOLAM [Concomitant]
     Active Substance: MIDAZOLAM\MIDAZOLAM HYDROCHLORIDE
     Dosage: UNK
     Route: 042
     Dates: start: 20130514, end: 20130514
  155. KETALAR [Concomitant]
     Active Substance: KETAMINE HYDROCHLORIDE
     Route: 042
     Dates: start: 20130311, end: 20130311
  156. KETALAR [Concomitant]
     Active Substance: KETAMINE HYDROCHLORIDE
     Route: 042
     Dates: start: 20130415, end: 20130415
  157. POLARAMINE [Concomitant]
     Active Substance: DEXCHLORPHENIRAMINE MALEATE
     Route: 042
     Dates: start: 20130310, end: 20130310

REACTIONS (59)
  - Febrile neutropenia [Recovered/Resolved]
  - Stomatitis [Recovered/Resolved]
  - Acne [Recovered/Resolved]
  - Anaemia [Recovering/Resolving]
  - Aspartate aminotransferase increased [Recovering/Resolving]
  - Blood lactate dehydrogenase increased [Recovered/Resolved]
  - Blood lactate dehydrogenase increased [Recovered/Resolved]
  - Nausea [Recovered/Resolved]
  - Malaise [Recovered/Resolved]
  - Headache [Recovered/Resolved]
  - Febrile neutropenia [Recovered/Resolved]
  - Amylase increased [Recovered/Resolved]
  - Ligament sprain [Recovered/Resolved]
  - Hypoaesthesia [Recovering/Resolving]
  - Antithrombin III decreased [Recovered/Resolved]
  - Vomiting [Recovered/Resolved]
  - Hypokalaemia [Recovered/Resolved]
  - Alanine aminotransferase increased [Recovering/Resolving]
  - Vomiting [Recovered/Resolved]
  - Gastrointestinal mucosal disorder [Recovered/Resolved]
  - Stomatitis [Recovered/Resolved]
  - Febrile neutropenia [Recovered/Resolved]
  - Rash [Recovered/Resolved]
  - Nausea [Recovered/Resolved]
  - Blood urea increased [Recovered/Resolved]
  - Aspartate aminotransferase increased [Recovered/Resolved]
  - Hepatic function abnormal [Recovering/Resolving]
  - Pharyngitis [Recovered/Resolved]
  - Stomatitis [Recovered/Resolved]
  - Aspartate aminotransferase increased [Recovered/Resolved]
  - Vomiting [Recovered/Resolved]
  - C-reactive protein increased [Recovered/Resolved]
  - Oesophageal candidiasis [Recovered/Resolved]
  - Rash [Recovered/Resolved]
  - Stomatitis [Recovered/Resolved]
  - Aspartate aminotransferase increased [Recovered/Resolved]
  - Febrile neutropenia [Recovered/Resolved]
  - Oropharyngeal pain [Recovered/Resolved]
  - Insomnia [Recovered/Resolved]
  - Chest pain [Recovered/Resolved]
  - Skin ulcer [Recovered/Resolved]
  - Restlessness [Recovered/Resolved]
  - Dry eye [Recovered/Resolved]
  - Prothrombin time prolonged [Recovered/Resolved]
  - Hyponatraemia [Recovered/Resolved]
  - Alanine aminotransferase increased [Recovered/Resolved]
  - Rash [Recovered/Resolved]
  - Febrile neutropenia [Recovered/Resolved]
  - White blood cell count decreased [Recovering/Resolving]
  - Hypofibrinogenaemia [Recovered/Resolved]
  - Febrile neutropenia [Recovered/Resolved]
  - Abdominal pain [Recovered/Resolved]
  - Insomnia [Recovered/Resolved]
  - Platelet count decreased [Recovered/Resolved]
  - Peripheral motor neuropathy [Not Recovered/Not Resolved]
  - Hepatic function abnormal [Recovered/Resolved]
  - Abdominal pain [Recovered/Resolved]
  - Nausea [Recovered/Resolved]
  - Pulmonary mycosis [Recovered/Resolved]

NARRATIVE: CASE EVENT DATE: 20121206
